FAERS Safety Report 18355381 (Version 1)
Quarter: 2020Q4

REPORT INFORMATION
  Report Type: Spontaneous
  Country: US (occurrence: US)
  Receive Date: 20201006
  Receipt Date: 20201006
  Transmission Date: 20210114
  Serious: Yes (Hospitalization)
  Sender: FDA-Public Use
  Company Number: None

PATIENT
  Sex: Male

DRUGS (12)
  1. BACLOFEN. [Concomitant]
     Active Substance: BACLOFEN
  2. FEROSEMIDE [Concomitant]
  3. LANTUS [Concomitant]
     Active Substance: INSULIN GLARGINE
  4. LISINOPRIL. [Concomitant]
     Active Substance: LISINOPRIL
  5. AMBRISENTAN 10MG [Suspect]
     Active Substance: AMBRISENTAN
     Indication: PULMONARY ARTERIAL HYPERTENSION
     Route: 048
     Dates: start: 201908
  6. TADALAFIL 20MG [Suspect]
     Active Substance: TADALAFIL
     Indication: PULMONARY ARTERIAL HYPERTENSION
     Route: 048
     Dates: start: 201911
  7. GLYBURIDE. [Concomitant]
     Active Substance: GLYBURIDE
  8. LETAIRIS [Concomitant]
     Active Substance: AMBRISENTAN
  9. SPIRONOLACT [Concomitant]
     Active Substance: SPIRONOLACTONE
  10. NOVOLIN NOS [Concomitant]
     Active Substance: INSULIN HUMAN
  11. FERROUS SULF [Concomitant]
     Active Substance: FERROUS SULFATE
  12. TYVASO [Concomitant]
     Active Substance: TREPROSTINIL

REACTIONS (2)
  - Seizure [None]
  - Loss of consciousness [None]
